FAERS Safety Report 5057940-2 (Version None)
Quarter: 2006Q3

REPORT INFORMATION
  Report Type: 
  Country: None (occurrence: None)
  Receive Date: 20060721
  Receipt Date: 20060411
  Transmission Date: 20061208
  Serious: Yes (Hospitalization, Disabling)
  Sender: FDA-Public Use
  Company Number: US-GLAXOSMITHKLINE-A0601365A

PATIENT
  Age: 45 Year
  Sex: Female
  Weight: 116.8 kg

DRUGS (4)
  1. AVANDIA [Suspect]
     Dosage: 4MG TWICE PER DAY
     Route: 048
     Dates: start: 20060321
  2. AVANDAMET [Suspect]
     Dosage: 1TAB TWICE PER DAY
     Route: 048
     Dates: end: 20060321
  3. METFORMIN [Suspect]
     Dosage: 1000MG TWICE PER DAY
     Route: 048
     Dates: start: 20060321
  4. NOVOLOG [Concomitant]

REACTIONS (2)
  - DRUG INEFFECTIVE [None]
  - HYPOGLYCAEMIA [None]
